FAERS Safety Report 8486169-0 (Version None)
Quarter: 2012Q3

REPORT INFORMATION
  Report Type: 
  Country: None (occurrence: None)
  Receive Date: 20120703
  Receipt Date: 20120627
  Transmission Date: 20120928
  Serious: Yes (Hospitalization, Other)
  Sender: FDA-Public Use
  Company Number: MX-SANOFI-AVENTIS-2012SA046153

PATIENT
  Age: 67 Year
  Sex: Male
  Weight: 81 kg

DRUGS (7)
  1. SHORANT [Suspect]
     Route: 058
     Dates: start: 20080101, end: 20120501
  2. MYFORTIC [Concomitant]
     Route: 048
     Dates: start: 20120501
  3. BACTRIM [Concomitant]
     Indication: INFECTION PROPHYLAXIS
     Route: 048
     Dates: start: 20120501
  4. LANTUS [Suspect]
     Route: 058
     Dates: start: 20080101
  5. IRBESARTAN [Suspect]
     Route: 048
     Dates: start: 20060101, end: 20120501
  6. MYCOSTATIN [Concomitant]
     Route: 048
     Dates: start: 20120501
  7. CICLOSPORIN [Concomitant]
     Route: 048
     Dates: start: 20120501

REACTIONS (6)
  - CONSTIPATION [None]
  - AGEUSIA [None]
  - ABNORMAL FAECES [None]
  - RENAL FAILURE [None]
  - HYPERGLYCAEMIA [None]
  - HYPERTENSION [None]
